FAERS Safety Report 8252243-7 (Version None)
Quarter: 2012Q2

REPORT INFORMATION
  Report Type: 
  Country: None (occurrence: None)
  Receive Date: 20120402
  Receipt Date: 20110919
  Transmission Date: 20120825
  Serious: No
  Sender: FDA-Public Use
  Company Number: US-ABBOTT-11P-163-0856295-00

PATIENT
  Age: 92 Year
  Sex: Male
  Weight: 64.922 kg

DRUGS (1)
  1. ANDROGEL [Suspect]
     Indication: BLOOD TESTOSTERONE DECREASED
     Dates: start: 20110826, end: 20110901

REACTIONS (3)
  - HYPERHIDROSIS [None]
  - TREMOR [None]
  - NASOPHARYNGITIS [None]
